FAERS Safety Report 7125909-X (Version None)
Quarter: 2010Q4

REPORT INFORMATION
  Report Type: 
  Country: None (occurrence: None)
  Receive Date: 20101129
  Receipt Date: 20101115
  Transmission Date: 20110411
  Serious: Yes (Hospitalization)
  Sender: FDA-Public Use
  Company Number: PHHY2010JP38598

PATIENT
  Sex: Male

DRUGS (11)
  1. AFINITOR [Suspect]
     Indication: METASTATIC RENAL CELL CARCINOMA
     Dosage: 10 MG/DAY
     Route: 048
     Dates: start: 20100420, end: 20100515
  2. AFINITOR [Suspect]
     Dosage: 5 MG/DAY
     Route: 048
  3. SUNITINIB MALATE [Concomitant]
     Indication: METASTATIC RENAL CELL CARCINOMA
     Dosage: 50 MG
     Route: 048
     Dates: start: 20081112, end: 20100401
  4. SUNITINIB MALATE [Concomitant]
     Dosage: 37.5 MG
     Route: 048
  5. SUNITINIB MALATE [Concomitant]
     Dosage: 25 MG
     Route: 048
  6. SORAFENIB TOSILATE [Concomitant]
     Indication: METASTATIC RENAL CELL CARCINOMA
     Dosage: 800 MG
     Route: 048
     Dates: start: 20090216, end: 20091013
  7. SORAFENIB TOSILATE [Concomitant]
     Dosage: 600 MG
     Route: 048
  8. OMEPRAL [Concomitant]
     Dosage: 10 MG
     Route: 048
     Dates: start: 20100420
  9. CELECOXIB [Concomitant]
     Indication: METASTATIC RENAL CELL CARCINOMA
     Dosage: 200 MG
     Route: 048
     Dates: start: 20100420
  10. LASIX [Concomitant]
     Indication: METASTATIC RENAL CELL CARCINOMA
     Dosage: 40 MG
     Route: 048
     Dates: start: 20100420
  11. MYSLEE [Concomitant]
     Dosage: 5 MG
     Route: 048
     Dates: start: 20100420

REACTIONS (3)
  - APHAGIA [None]
  - PHARYNGEAL ULCERATION [None]
  - STOMATITIS [None]
